FAERS Safety Report 10526643 (Version 2)
Quarter: 2015Q1

REPORT INFORMATION
  Report Type: Report from Study
  Country: IN (occurrence: IN)
  Receive Date: 20141020
  Receipt Date: 20150313
  Transmission Date: 20150720
  Serious: Yes (Death, Hospitalization)
  Sender: FDA-Public Use
  Company Number: IN-BIOGENIDEC-2014BI107573

PATIENT
  Age: 26 Year
  Sex: Female

DRUGS (1)
  1. AVONEX [Suspect]
     Active Substance: INTERFERON BETA-1A
     Indication: MULTIPLE SCLEROSIS
     Route: 030
     Dates: start: 20140908

REACTIONS (4)
  - Death [Fatal]
  - Mobility decreased [Unknown]
  - Coma [Unknown]
  - Aphasia [Unknown]

NARRATIVE: CASE EVENT DATE: 20140929
